FAERS Safety Report 4632720-8 (Version None)
Quarter: 2005Q2

REPORT INFORMATION
  Report Type: 
  Country: None (occurrence: None)
  Receive Date: 20050412
  Receipt Date: 20050329
  Transmission Date: 20051028
  Serious: Yes (Hospitalization)
  Sender: FDA-Public Use
  Company Number: 200510954JP

PATIENT
  Age: 75 Year
  Sex: Male

DRUGS (1)
  1. TAXOTERE [Suspect]
     Indication: HYPOPHARYNGEAL CANCER
     Route: 041

REACTIONS (3)
  - DISSEMINATED INTRAVASCULAR COAGULATION [None]
  - PYREXIA [None]
  - WHITE BLOOD CELL COUNT DECREASED [None]
